FAERS Safety Report 17609845 (Version 1)
Quarter: 2020Q1

REPORT INFORMATION
  Report Type: Spontaneous
  Country: US (occurrence: US)
  Receive Date: 20200331
  Receipt Date: 20200331
  Transmission Date: 20200409
  Serious: No
  Sender: FDA-Public Use
  Company Number: None

PATIENT
  Age: 48 Year
  Sex: Male

DRUGS (2)
  1. HUMIRA [Suspect]
     Active Substance: ADALIMUMAB
     Dosage: ?          OTHER FREQUENCY:Q 2 WEEKS;?
     Route: 058
     Dates: start: 20200305
  2. HUMIRA CF 40MG/ML [Concomitant]
     Dates: start: 20200305

REACTIONS (2)
  - Muscle twitching [None]
  - Joint injury [None]

NARRATIVE: CASE EVENT DATE: 20200331
